FAERS Safety Report 16787363 (Version 1)
Quarter: 2019Q3

REPORT INFORMATION
  Report Type: Report from Study
  Country: BR (occurrence: BR)
  Receive Date: 20190909
  Receipt Date: 20190909
  Transmission Date: 20191005
  Serious: Yes (Other)
  Sender: FDA-Public Use
  Company Number: PHHY2019BR209307

PATIENT
  Sex: Male

DRUGS (1)
  1. COSENTYX [Suspect]
     Active Substance: SECUKINUMAB
     Indication: PRODUCT USED FOR UNKNOWN INDICATION
     Dosage: UNK
     Route: 065
     Dates: start: 20190725

REACTIONS (7)
  - Nervousness [Unknown]
  - Blood potassium decreased [Unknown]
  - Bradycardia [Unknown]
  - Stress [Unknown]
  - Inflammation [Unknown]
  - Arthralgia [Unknown]
  - Blood calcium decreased [Unknown]
